FAERS Safety Report 17699552 (Version 1)
Quarter: 2020Q2

REPORT INFORMATION
  Report Type: Report from Study
  Country: US (occurrence: US)
  Receive Date: 20200423
  Receipt Date: 20200423
  Transmission Date: 20200714
  Serious: No
  Sender: FDA-Public Use
  Company Number: US-BIOVITRUM-2020US1429

PATIENT
  Sex: Female

DRUGS (2)
  1. KINERET [Suspect]
     Active Substance: ANAKINRA
     Route: 058
     Dates: start: 20200310, end: 20200417
  2. KINERET [Suspect]
     Active Substance: ANAKINRA
     Indication: RHEUMATOID ARTHRITIS
     Route: 058
     Dates: start: 20200305

REACTIONS (7)
  - Pain [Unknown]
  - Skin exfoliation [Unknown]
  - Condition aggravated [Unknown]
  - Depression [Unknown]
  - Skin ulcer [Unknown]
  - Injection site pain [Recovered/Resolved]
  - Drug ineffective [Unknown]
